FAERS Safety Report 8830592 (Version 1)
Quarter: 2012Q4

REPORT INFORMATION
  Report Type: 
  Country: JP (occurrence: JP)
  Receive Date: 20121009
  Receipt Date: 20121009
  Transmission Date: 20130627
  Serious: Yes (Life-Threatening)
  Sender: FDA-Public Use
  Company Number: JP-BAYER-2012-017581

PATIENT
  Age: 66 Year
  Sex: Male

DRUGS (3)
  1. NEXAVAR [Suspect]
     Indication: HEPATIC NEOPLASM MALIGNANT
     Dosage: Daily dose 400 mg
     Route: 048
     Dates: start: 20120216, end: 20120220
  2. BARACLUDE [Concomitant]
     Indication: HEPATIC CIRRHOSIS
     Dosage: Daily dose .5 mg
     Route: 048
     Dates: start: 2011
  3. URSO [Concomitant]
     Indication: HEPATIC CIRRHOSIS
     Dosage: Daily dose 600 mg
     Route: 048
     Dates: start: 2011

REACTIONS (1)
  - Liver disorder [Recovered/Resolved]
